FAERS Safety Report 7241066-3 (Version None)
Quarter: 2011Q1

REPORT INFORMATION
  Report Type: 
  Country: None (occurrence: None)
  Receive Date: 20110124
  Receipt Date: 20110114
  Transmission Date: 20110831
  Serious: Yes (Hospitalization)
  Sender: FDA-Public Use
  Company Number: RU-GENZYME-CAMP-1000558

PATIENT
  Sex: Female
  Weight: 48 kg

DRUGS (7)
  1. ALEMTUZUMAB [Suspect]
     Dosage: 12 MG, QDX3
     Route: 042
     Dates: start: 20100421, end: 20100423
  2. METHYLPREDNISOLONE [Concomitant]
     Dosage: 1 G, QDX3
     Route: 042
     Dates: start: 20100421, end: 20100423
  3. CURANTIL [Concomitant]
     Indication: PROPHYLAXIS
     Dosage: 25 MG, TID
     Route: 048
     Dates: start: 20100209, end: 20100305
  4. METHYLPREDNISOLONE [Concomitant]
     Indication: MULTIPLE SCLEROSIS
     Dosage: 1 G, QDX3
     Route: 042
     Dates: start: 20090323, end: 20090325
  5. MEXIDOL [Concomitant]
     Indication: MULTIPLE SCLEROSIS
     Dosage: 100 MG, BID
     Route: 048
     Dates: start: 20100209, end: 20100305
  6. OMEZ [Concomitant]
     Indication: GASTRITIS PROPHYLAXIS
     Dosage: 20 MG, QD
     Route: 048
     Dates: start: 20100226, end: 20100305
  7. ALEMTUZUMAB [Suspect]
     Indication: MULTIPLE SCLEROSIS
     Dosage: 12 MG, QDX5
     Route: 042
     Dates: start: 20090323, end: 20090327

REACTIONS (1)
  - GOITRE [None]
